FAERS Safety Report 9344784 (Version 1)
Quarter: 2013Q2

REPORT INFORMATION
  Report Type: Spontaneous
  Country: US (occurrence: US)
  Receive Date: 20130612
  Receipt Date: 20130612
  Transmission Date: 20140414
  Serious: Yes (Other)
  Sender: FDA-Public Use
  Company Number: US-PFIZER INC-2013174871

PATIENT
  Age: 86 Year
  Sex: Male

DRUGS (2)
  1. GABAPENTIN [Suspect]
     Dosage: UNK
  2. REVLIMID [Suspect]
     Indication: PLASMA CELL MYELOMA
     Dosage: 5 MG, ONE EVERY 2 DAYS
     Route: 048
     Dates: start: 201304

REACTIONS (3)
  - Confusional state [Unknown]
  - Dizziness [Unknown]
  - Back pain [Unknown]
